FAERS Safety Report 5035614-1 (Version None)
Quarter: 2006Q2

REPORT INFORMATION
  Report Type: 
  Country: None (occurrence: None)
  Receive Date: 20060627
  Receipt Date: 20060623
  Transmission Date: 20061013
  Serious: Yes (Other)
  Sender: FDA-Public Use
  Company Number: US-GLAXOSMITHKLINE-A0610185A

PATIENT
  Age: 70 Year
  Sex: Male

DRUGS (5)
  1. REQUIP [Suspect]
     Indication: PARKINSON'S DISEASE
     Route: 048
     Dates: start: 20060323, end: 20060522
  2. SEROQUEL [Suspect]
     Dates: start: 20060101
  3. ZOCOR [Concomitant]
  4. NIFEDIPINE [Concomitant]
  5. ASPIRIN [Concomitant]

REACTIONS (7)
  - ABNORMAL BEHAVIOUR [None]
  - ANXIETY [None]
  - CEREBROVASCULAR ACCIDENT [None]
  - HALLUCINATION, VISUAL [None]
  - HYPOTENSION [None]
  - INSOMNIA [None]
  - PARANOIA [None]
